FAERS Safety Report 12601637 (Version 1)
Quarter: 2016Q3

REPORT INFORMATION
  Report Type: Spontaneous
  Country: DK (occurrence: DK)
  Receive Date: 20160728
  Receipt Date: 20160728
  Transmission Date: 20161109
  Serious: Yes (Hospitalization, Other)
  Sender: FDA-Public Use
  Company Number: DK-BRISTOL-MYERS SQUIBB COMPANY-BMS-2016-058906

PATIENT
  Age: 37 Year
  Sex: Female

DRUGS (11)
  1. SEROQUEL [Suspect]
     Active Substance: QUETIAPINE FUMARATE
     Dosage: 200 MG, UNK
     Route: 048
  2. ABILIFY [Suspect]
     Active Substance: ARIPIPRAZOLE
     Indication: MENTAL DISORDER
     Dosage: 15 MG, UNK
     Route: 048
  3. MIANSERIN MYLAN [Suspect]
     Active Substance: MIANSERIN
     Indication: DEPRESSION
     Dosage: 20 MG, UNK
     Route: 048
  4. ABILIFY [Suspect]
     Active Substance: ARIPIPRAZOLE
     Indication: RESTLESSNESS
     Dosage: 30 MG, UNK
     Route: 048
  5. ABILIFY [Suspect]
     Active Substance: ARIPIPRAZOLE
     Dosage: 30 MG, UNK
     Route: 048
  6. TOLMIN [Suspect]
     Active Substance: MIANSERIN HYDROCHLORIDE
     Indication: DEPRESSION
     Dosage: 20 MG, UNK
     Route: 048
  7. QUETIAPIN ACCORD [Suspect]
     Active Substance: QUETIAPINE
     Indication: DEPRESSION
     Dosage: 25 MG, UNK
     Route: 048
     Dates: start: 20140129
  8. SEROQUEL [Suspect]
     Active Substance: QUETIAPINE FUMARATE
     Dosage: 150 MG, UNK
     Route: 048
  9. MELATONIN [Suspect]
     Active Substance: MELATONIN
     Indication: PRODUCT USED FOR UNKNOWN INDICATION
     Dosage: 3 MG, QD
     Route: 048
  10. LAMOTRIGIN STADA [Suspect]
     Active Substance: LAMOTRIGINE
     Indication: RESTLESSNESS
     Dosage: 300 MG, UNK
     Route: 048
  11. SEROQUEL [Suspect]
     Active Substance: QUETIAPINE FUMARATE
     Indication: SCHIZOPHRENIA
     Dosage: 400 MG, UNK
     Route: 048

REACTIONS (18)
  - Musculoskeletal stiffness [Unknown]
  - Product use issue [Unknown]
  - Suicidal ideation [Unknown]
  - Apathy [Unknown]
  - Menopausal symptoms [Unknown]
  - Emotional poverty [Unknown]
  - Disturbance in attention [Unknown]
  - Amenorrhoea [Unknown]
  - Communication disorder [Unknown]
  - Sleep phase rhythm disturbance [Unknown]
  - Loss of dreaming [Unknown]
  - Depressed mood [Unknown]
  - Dry mouth [Unknown]
  - Stress [Unknown]
  - Fatigue [Unknown]
  - Memory impairment [Unknown]
  - Pollakiuria [Unknown]
  - Insomnia [Unknown]

NARRATIVE: CASE EVENT DATE: 20141119
